FAERS Safety Report 9155230 (Version 2)
Quarter: 2013Q3

REPORT INFORMATION
  Report Type: Spontaneous
  Country: US (occurrence: US)
  Receive Date: 20130311
  Receipt Date: 20130905
  Transmission Date: 20140515
  Serious: Yes (Other)
  Sender: FDA-Public Use
  Company Number: US-009507513-1303USA003974

PATIENT
  Sex: Female

DRUGS (3)
  1. FOSAMAX [Suspect]
     Indication: OSTEOPOROSIS
     Dosage: 70 MG, UNK
     Route: 048
     Dates: start: 20000512, end: 20081126
  2. FOSAMAX [Suspect]
     Indication: OSTEOPENIA
  3. ALENDRONATE SODIUM [Suspect]
     Dosage: 70 MG, UNK
     Route: 048
     Dates: start: 20081126, end: 20110103

REACTIONS (8)
  - Femur fracture [Unknown]
  - Intramedullary rod insertion [Unknown]
  - Low turnover osteopathy [Unknown]
  - Fall [Unknown]
  - Fall [Unknown]
  - Lower limb fracture [Unknown]
  - Fall [Unknown]
  - Head injury [Unknown]
